FAERS Safety Report 15471006 (Version 2)
Quarter: 2019Q1

REPORT INFORMATION
  Report Type: Report from Study
  Country: US (occurrence: US)
  Receive Date: 20181006
  Receipt Date: 20190222
  Transmission Date: 20190417
  Serious: No
  Sender: FDA-Public Use
  Company Number: US-IPSEN BIOPHARMACEUTICALS, INC.-2018-14183

PATIENT
  Age: 10 Year
  Sex: Male
  Weight: 24.9 kg

DRUGS (9)
  1. VITAMIN D [Concomitant]
     Active Substance: CHOLECALCIFEROL
     Indication: SPINAL MUSCULAR ATROPHY
     Route: 048
  2. PHENOL/ALCOHOL INJECTIONS [Concomitant]
     Dosage: DOSE: 5
     Route: 030
     Dates: start: 20180608
  3. COENZYME Q10 [Concomitant]
     Active Substance: UBIDECARENONE
     Indication: SPINAL MUSCULAR ATROPHY
     Route: 048
  4. DYSPORT [Suspect]
     Active Substance: ABOBOTULINUMTOXINA
     Indication: MUSCLE SPASTICITY
     Dosage: 600
     Route: 030
     Dates: start: 20180608, end: 20180608
  5. DYSPORT [Suspect]
     Active Substance: ABOBOTULINUMTOXINA
     Indication: OFF LABEL USE
  6. DYSPORT [Suspect]
     Active Substance: ABOBOTULINUMTOXINA
     Indication: MUSCLE SPASTICITY
  7. DYSPORT [Suspect]
     Active Substance: ABOBOTULINUMTOXINA
     Indication: MUSCLE SPASTICITY
  8. MAGNESIUM [Concomitant]
     Active Substance: MAGNESIUM
     Indication: SPINAL MUSCULAR ATROPHY
     Route: 048
  9. DYSPORT [Suspect]
     Active Substance: ABOBOTULINUMTOXINA
     Indication: MUSCLE SPASTICITY
     Dosage: 600 (UNIT NOT REPORTED)
     Route: 030
     Dates: start: 20171110, end: 20171110

REACTIONS (3)
  - Suicidal ideation [Recovering/Resolving]
  - Off label use [Unknown]
  - Separation anxiety disorder [Recovered/Resolved]

NARRATIVE: CASE EVENT DATE: 20180319
